FAERS Safety Report 10030754 (Version 1)
Quarter: 2014Q1

REPORT INFORMATION
  Report Type: Spontaneous
  Country: US (occurrence: US)
  Receive Date: 20140323
  Receipt Date: 20140323
  Transmission Date: 20141002
  Serious: No
  Sender: FDA-Public Use
  Company Number: US-ALLERGAN-1402021US

PATIENT
  Sex: Female

DRUGS (3)
  1. LATISSE 0.03% [Suspect]
     Indication: GROWTH OF EYELASHES
     Dosage: 2 GTT, QHS
     Route: 061
     Dates: end: 201401
  2. LORAZEPAM [Concomitant]
     Indication: ANXIETY
     Dosage: UNK UNK, QD
     Route: 048
     Dates: start: 2013
  3. EFFEXOR [Concomitant]
     Indication: ANXIETY
     Dosage: UNK UNK, QD
     Route: 048
     Dates: start: 2013

REACTIONS (1)
  - Madarosis [Unknown]
